FAERS Safety Report 9332655 (Version 1)
Quarter: 2013Q2

REPORT INFORMATION
  Report Type: Report from Study
  Country: US (occurrence: US)
  Receive Date: 20130606
  Receipt Date: 20130606
  Transmission Date: 20140414
  Serious: Yes (Other)
  Sender: FDA-Public Use
  Company Number: US-ROCHE-1231966

PATIENT
  Sex: Female

DRUGS (18)
  1. KADCYLA [Suspect]
     Indication: BREAST CANCER
     Route: 065
     Dates: start: 20130528
  2. XELODA [Suspect]
     Indication: PRODUCT USED FOR UNKNOWN INDICATION
     Route: 065
     Dates: end: 20121120
  3. HERCEPTIN [Suspect]
     Indication: BREAST CANCER
     Route: 065
     Dates: end: 201104
  4. ASPIRIN [Concomitant]
     Route: 065
  5. ATIVAN [Concomitant]
  6. CARVEDILOL [Concomitant]
     Route: 065
  7. CELEXA (UNITED STATES) [Concomitant]
     Route: 065
  8. VITAMIN D3 [Concomitant]
     Dosage: 50000 UNIT TABLET
     Route: 065
  9. CRESTOR [Concomitant]
     Route: 065
  10. EFFEXOR [Concomitant]
     Dosage: EFFEXOR XR
     Route: 065
  11. FLEXERIL (UNITED STATES) [Concomitant]
     Route: 065
  12. GLUCOPHAGE XR [Concomitant]
     Route: 065
  13. LEVAQUIN [Concomitant]
     Route: 065
  14. OXYCONTIN [Concomitant]
     Dosage: OXYCONTIN ER
     Route: 065
  15. OXYCONTIN [Concomitant]
     Dosage: OXYIR
     Route: 065
  16. TEMAZEPAM [Concomitant]
     Route: 065
  17. ZESTRIL [Concomitant]
     Route: 065
  18. ZOFRAN [Concomitant]
     Route: 065

REACTIONS (13)
  - Cardiotoxicity [Unknown]
  - Cardiac output decreased [Unknown]
  - Fatigue [Unknown]
  - Diarrhoea [Recovered/Resolved]
  - Hyperlipidaemia [Unknown]
  - Depression [Unknown]
  - Type 2 diabetes mellitus [Unknown]
  - Neutropenia [Unknown]
  - Anaemia [Unknown]
  - Liver disorder [Unknown]
  - Dehydration [Unknown]
  - Hypokalaemia [Recovering/Resolving]
  - Abdominal pain upper [Recovered/Resolved]
